FAERS Safety Report 18129442 (Version 1)
Quarter: 2020Q3

REPORT INFORMATION
  Report Type: Spontaneous
  Country: US (occurrence: US)
  Receive Date: 20200807
  Receipt Date: 20200807
  Transmission Date: 20201103
  Serious: Yes (Hospitalization)
  Sender: FDA-Public Use
  Company Number: None

PATIENT
  Sex: Female

DRUGS (16)
  1. METOLAZONE. [Concomitant]
     Active Substance: METOLAZONE
  2. OPEPRAZOLE [Concomitant]
  3. DIPHEN/ATROP [Concomitant]
     Active Substance: ATROPINE SULFATE\DIPHENOXYLATE
  4. LABETALOL [Concomitant]
     Active Substance: LABETALOL\LABETALOL HYDROCHLORIDE
  5. LOSARTAN POT [Concomitant]
     Active Substance: LOSARTAN POTASSIUM
  6. CLOPIDOGREL [Concomitant]
     Active Substance: CLOPIDOGREL BISULFATE
  7. ROSUVASTATIN. [Concomitant]
     Active Substance: ROSUVASTATIN
  8. TEMAZEPAM. [Concomitant]
     Active Substance: TEMAZEPAM
  9. OLMESA MEDOX [Concomitant]
  10. ALPRAZOLAM. [Concomitant]
     Active Substance: ALPRAZOLAM
  11. HYDROXYCHLOR [Concomitant]
     Active Substance: HYDROXYCHLOROQUINE
  12. DARZALEX [Suspect]
     Active Substance: DARATUMUMAB
     Dosage: ?          OTHER DOSE:400MG/20M;OTHER FREQUENCY:1,8,15 + 22;?
     Route: 042
     Dates: start: 20200608
  13. DEXAMETHASONE. [Concomitant]
     Active Substance: DEXAMETHASONE
  14. LEVOTHYROXIN [Concomitant]
     Active Substance: LEVOTHYROXINE
  15. METHYLPRED [Concomitant]
     Active Substance: METHYLPREDNISOLONE
  16. NIFEDIPINE. [Concomitant]
     Active Substance: NIFEDIPINE

REACTIONS (1)
  - Pneumonia [None]
